FAERS Safety Report 14823918 (Version 3)
Quarter: 2018Q2

REPORT INFORMATION
  Report Type: Spontaneous
  Country: DE (occurrence: DE)
  Receive Date: 20180428
  Receipt Date: 20180515
  Transmission Date: 20180711
  Serious: Yes (Death, Hospitalization)
  Sender: FDA-Public Use
  Company Number: DE-MYLANLABS-2018M1027575

PATIENT
  Age: 98 Year
  Sex: Male
  Weight: 73 kg

DRUGS (8)
  1. OXYCODONE [Concomitant]
     Active Substance: OXYCODONE
     Dosage: UNK (ON THERAPY DAY 2)
     Route: 048
  2. OXYCODONE [Concomitant]
     Active Substance: OXYCODONE
     Dosage: 15 MG, QD
     Route: 048
  3. MORPHINE [Suspect]
     Active Substance: MORPHINE
     Indication: PAIN
     Dosage: 260 MG, UNK
     Route: 042
  4. MORPHINE [Suspect]
     Active Substance: MORPHINE
     Indication: PALLIATIVE CARE
     Dosage: UNK (200 MG/50 ML)
     Route: 041
  5. OXYCODONE [Concomitant]
     Active Substance: OXYCODONE
     Indication: PAIN
     Dosage: 5 MG, TID (16:00 H, 20:00 H AND 24:00H)
     Route: 048
  6. MAGNESIUM [Concomitant]
     Active Substance: MAGNESIUM
     Indication: PRODUCT USED FOR UNKNOWN INDICATION
     Route: 065
  7. OXYCODONE [Concomitant]
     Active Substance: OXYCODONE
     Indication: PALLIATIVE CARE
     Dosage: UNK (ON THERAPY DAY 1)
     Route: 048
  8. OXYCODONE [Concomitant]
     Active Substance: OXYCODONE
     Dosage: 20 MG, QD (5 MG 4 TIMES A DAY 04:00 H, 08: 00 H, 13:00 H AND 19:00 H)

REACTIONS (5)
  - Anuria [Fatal]
  - Cardiopulmonary failure [Fatal]
  - Toxicity to various agents [Fatal]
  - Overdose [Fatal]
  - Drug level increased [Fatal]
